FAERS Safety Report 11810523 (Version 1)
Quarter: 2015Q4

REPORT INFORMATION
  Report Type: Spontaneous
  Country: US (occurrence: None)
  Receive Date: 20151207
  Receipt Date: 20151207
  Transmission Date: 20160305
  Serious: Yes (Disabling, Other)
  Sender: FDA-Public Use
  Company Number: None

PATIENT
  Age: 49 Year
  Sex: Female
  Weight: 53.98 kg

DRUGS (3)
  1. BAYER [Concomitant]
     Active Substance: ASPIRIN
  2. LEVOTHYROXINE. [Suspect]
     Active Substance: LEVOTHYROXINE
     Indication: BASEDOW^S DISEASE
     Dosage: 1 PILL
     Route: 048
  3. SINGULAIR [Concomitant]
     Active Substance: MONTELUKAST SODIUM

REACTIONS (5)
  - Hyperhidrosis [None]
  - Skin infection [None]
  - Blister [None]
  - Abscess [None]
  - Vaginal ulceration [None]

NARRATIVE: CASE EVENT DATE: 20151122
